FAERS Safety Report 6371239-3 (Version None)
Quarter: 2009Q3

REPORT INFORMATION
  Report Type: 
  Country: None (occurrence: None)
  Receive Date: 20090923
  Receipt Date: 20070529
  Transmission Date: 20100115
  Serious: No
  Sender: FDA-Public Use
  Company Number: US-ASTRAZENECA-2007UW02680

PATIENT
  Age: 583 Month
  Sex: Male
  Weight: 65.3 kg

DRUGS (25)
  1. SEROQUEL [Suspect]
     Indication: SLEEP DISORDER
     Dates: start: 20040101
  2. SEROQUEL [Suspect]
     Route: 048
     Dates: start: 20060504
  3. VITAMIN B-12 [Concomitant]
     Dosage: 1 CC MONTHLY
     Route: 030
     Dates: start: 20060905
  4. WELCHOL [Concomitant]
  5. WARFARIN SODIUM [Concomitant]
  6. CYANOCOBALAMIN [Concomitant]
  7. GABAPENTIN [Concomitant]
     Route: 048
     Dates: start: 20050125
  8. VALTREX [Concomitant]
     Route: 048
     Dates: start: 20050127
  9. FLUOXETINE HCL [Concomitant]
     Dates: start: 20050322
  10. COMBIVIR [Concomitant]
     Dosage: 150 MG/300 MG, BID
     Route: 048
     Dates: start: 20001127
  11. METFORMIN HCL [Concomitant]
     Dates: start: 20060525
  12. TRAZODONE [Concomitant]
  13. SIMVASTATIN [Concomitant]
  14. PROPOXYPHENE HCL CAP [Concomitant]
     Dosage: 100/65 MG
  15. KALETRA [Concomitant]
     Dosage: 200/50
  16. KALETRA [Concomitant]
     Dosage: 200/500 MG, 2 TABLETS TWO TIMES A DAY
     Route: 048
     Dates: start: 20060711
  17. DOXYCYCLINE [Concomitant]
  18. BENADRYL [Concomitant]
     Route: 048
     Dates: start: 20010307
  19. COUMADIN [Concomitant]
     Dosage: 5 MG Q 6 PM, 3 MG AT NIGHT, 2.5 MG DAILY, 1 MG DAILY
     Route: 048
     Dates: start: 19990205
  20. ZOCOR [Concomitant]
     Route: 048
     Dates: start: 20060522
  21. LEXAPRO [Concomitant]
     Route: 048
     Dates: start: 20060925
  22. ALBUTEROL [Concomitant]
     Indication: DYSPNOEA
     Dosage: ALBUTEROL 0.083% ATROVENT NEB QID PRN
     Dates: start: 20060925
  23. ATROVENT [Concomitant]
     Indication: DYSPNOEA
     Dosage: ALBUTEROL 0.083% ATROVENT NEB QID PRN
     Dates: start: 20060925
  24. PREDNISONE [Concomitant]
     Route: 048
     Dates: start: 20061017
  25. DAPSONE [Concomitant]
     Route: 048
     Dates: start: 20070122

REACTIONS (5)
  - DIABETES MELLITUS [None]
  - HYPERGLYCAEMIA [None]
  - HYPERLIPIDAEMIA [None]
  - RENAL DISORDER [None]
  - TYPE 2 DIABETES MELLITUS [None]
